FAERS Safety Report 8781527 (Version 1)
Quarter: 2012Q4

REPORT INFORMATION
  Report Type: 
  Country: US (occurrence: US)
  Receive Date: 20120913
  Receipt Date: 20120913
  Transmission Date: 20130627
  Serious: No
  Sender: FDA-Public Use
  Company Number: US-BAYER-2012-081393

PATIENT
  Sex: Female

DRUGS (1)
  1. CIPRO [Suspect]
     Indication: EAR INFECTION
     Dosage: 7.5 ml, UNK
     Dates: start: 201207

REACTIONS (1)
  - Auricular swelling [None]
